FAERS Safety Report 5468215-1 (Version None)
Quarter: 2007Q3

REPORT INFORMATION
  Report Type: 
  Country: None (occurrence: None)
  Receive Date: 20070926
  Receipt Date: 20070924
  Transmission Date: 20080115
  Serious: Yes (Life-Threatening, Hospitalization)
  Sender: FDA-Public Use
  Company Number: FR-ASTRAZENECA-2007CG01345

PATIENT
  Age: 23164 Day
  Sex: Male

DRUGS (7)
  1. INEXIUM [Suspect]
     Indication: ULCER
     Route: 048
  2. REYATAZ [Suspect]
     Indication: HIV TEST POSITIVE
     Route: 048
     Dates: start: 20070515
  3. TRIFLUCAN [Suspect]
     Route: 048
  4. KIVEXA [Concomitant]
     Indication: HIV TEST POSITIVE
     Route: 048
     Dates: start: 20070713
  5. BACTRIM DS [Concomitant]
     Indication: INFECTION
     Route: 048
  6. DEPAKENE [Concomitant]
     Indication: EPILEPSY
     Route: 048
  7. SEROPRAM [Concomitant]
     Indication: DEPRESSION
     Route: 048

REACTIONS (8)
  - CRYSTAL URINE [None]
  - CULTURE URINE POSITIVE [None]
  - DYSURIA [None]
  - HAEMATURIA [None]
  - HEPATIC CIRRHOSIS [None]
  - HEPATIC NEOPLASM [None]
  - KLEBSIELLA INFECTION [None]
  - PROTEUS INFECTION [None]
